FAERS Safety Report 6785832-7 (Version None)
Quarter: 2010Q2

REPORT INFORMATION
  Report Type: 
  Country: None (occurrence: None)
  Receive Date: 20100623
  Receipt Date: 20100617
  Transmission Date: 20101027
  Serious: Yes (Death, Hospitalization)
  Sender: FDA-Public Use
  Company Number: GB-PFIZER INC-2010073254

PATIENT
  Age: 70 Year
  Sex: Male

DRUGS (2)
  1. MISOPROSTOL, DICLOFENAC SODIUM [Suspect]
     Indication: RHEUMATOID ARTHRITIS
     Dosage: 75 MG, 2X/DAY
     Route: 048
     Dates: start: 20090724
  2. SULFASALAZINE [Concomitant]
     Indication: LUNG NEOPLASM MALIGNANT
     Dosage: 1000 MG, 2X/DAY
     Dates: start: 20021108, end: 20100101

REACTIONS (3)
  - CARDIO-RESPIRATORY ARREST [None]
  - LUNG NEOPLASM MALIGNANT [None]
  - PLEURAL EFFUSION [None]
